FAERS Safety Report 16837329 (Version 3)
Quarter: 2019Q4

REPORT INFORMATION
  Report Type: Spontaneous
  Country: IT (occurrence: IT)
  Receive Date: 20190923
  Receipt Date: 20191231
  Transmission Date: 20200122
  Serious: Yes (Other)
  Sender: FDA-Public Use
  Company Number: IT-SUN PHARMACEUTICAL INDUSTRIES LTD-2019RR-221315

PATIENT
  Age: 62 Year
  Sex: Female

DRUGS (1)
  1. LETROZOLE. [Suspect]
     Active Substance: LETROZOLE
     Indication: BREAST CANCER
     Dosage: 1 DOSAGE FORM, DAILY
     Route: 048

REACTIONS (3)
  - Dyspepsia [Recovering/Resolving]
  - Hot flush [Recovering/Resolving]
  - Gastrointestinal hypomotility [Recovering/Resolving]

NARRATIVE: CASE EVENT DATE: 20190821
